FAERS Safety Report 4263614-8 (Version None)
Quarter: 2004Q1

REPORT INFORMATION
  Report Type: 
  Country: None (occurrence: None)
  Receive Date: 20040102
  Receipt Date: 20031222
  Transmission Date: 20041129
  Serious: Yes (Hospitalization)
  Sender: FDA-Public Use
  Company Number: S03-USA-05298-01

PATIENT
  Age: 91 Year
  Sex: Female
  Weight: 63.5036 kg

DRUGS (6)
  1. LEXAPRO [Suspect]
     Indication: DEPRESSION
     Dosage: 10 MG QD PO
     Route: 048
     Dates: start: 20031112
  2. ZYPREXA [Concomitant]
  3. FERROUS SULFATE TAB [Concomitant]
  4. LEVOTHROID(LEVOTHYROXINE SODIUM0 [Concomitant]
  5. LORTAB [Concomitant]
  6. ATIVAN [Concomitant]

REACTIONS (1)
  - GRAND MAL CONVULSION [None]
